FAERS Safety Report 9820306 (Version 1)
Quarter: 2013Q4

REPORT INFORMATION
  Report Type: Spontaneous
  Country: US (occurrence: None)
  Receive Date: 20131021
  Receipt Date: 20131021
  Transmission Date: 20140711
  Serious: Yes (Other)
  Sender: FDA-Public Use
  Company Number: ALL1-2013-04081

PATIENT
  Age: 14 Year
  Sex: Female

DRUGS (3)
  1. VYVANSE [Suspect]
     Indication: PRODUCT USED FOR UNKNOWN INDICATION
     Route: 048
  2. OTHER ANTIDEPRESSANTS [Concomitant]
  3. OTHER ANTIDEPRESSANTS [Concomitant]

REACTIONS (2)
  - Depression [None]
  - Drug effect decreased [None]
